FAERS Safety Report 7317682-7 (Version None)
Quarter: 2011Q1

REPORT INFORMATION
  Report Type: 
  Country: None (occurrence: None)
  Receive Date: 20110226
  Receipt Date: 20101130
  Transmission Date: 20110831
  Serious: No
  Sender: FDA-Public Use
  Company Number: US-ALLERGAN-1015464US

PATIENT
  Age: 78 Year
  Sex: Female

DRUGS (1)
  1. BOTOXA? [Suspect]
     Indication: NECK PAIN
     Dosage: 300 UNITS, SINGLE
     Route: 030
     Dates: start: 20101110, end: 20101110

REACTIONS (3)
  - MUSCLE SPASMS [None]
  - DIZZINESS [None]
  - MUSCULAR WEAKNESS [None]
